FAERS Safety Report 5663493-8 (Version None)
Quarter: 2008Q1

REPORT INFORMATION
  Report Type: 
  Country: None (occurrence: None)
  Receive Date: 20080313
  Receipt Date: 20080304
  Transmission Date: 20080703
  Serious: Yes (Other)
  Sender: FDA-Public Use
  Company Number: GT-GENENTECH-257443

PATIENT
  Age: 68 Year
  Sex: Female

DRUGS (1)
  1. AVASTIN [Suspect]
     Indication: GLAUCOMA
     Dosage: 1.25 MG, UNK
     Route: 031
     Dates: start: 20080229, end: 20080229

REACTIONS (4)
  - EYE PAIN [None]
  - HYPOPYON [None]
  - INTRAOCULAR PRESSURE INCREASED [None]
  - UVEITIS [None]
